FAERS Safety Report 4379629-5 (Version None)
Quarter: 2004Q2

REPORT INFORMATION
  Report Type: 
  Country: None (occurrence: None)
  Receive Date: 20040617
  Receipt Date: 20040517
  Transmission Date: 20050107
  Serious: Yes (Death, Life-Threatening, Hospitalization, Other)
  Sender: FDA-Public Use
  Company Number: ES-MERCK-0405ESP00041

PATIENT
  Age: 85 Year
  Sex: Female

DRUGS (4)
  1. SINGULAIR [Suspect]
     Indication: ASTHMA
     Route: 048
     Dates: start: 20040101, end: 20040101
  2. SINGULAIR [Suspect]
     Route: 048
     Dates: start: 20040101, end: 20040201
  3. RIVASTIGMINE [Concomitant]
     Indication: DEMENTIA
     Route: 048
     Dates: start: 20040101, end: 20040101
  4. RIVASTIGMINE [Concomitant]
     Route: 048
     Dates: start: 20040101, end: 20040201

REACTIONS (5)
  - HYPONATRAEMIA [None]
  - RESPIRATORY TRACT INFECTION [None]
  - RIGHT VENTRICULAR FAILURE [None]
  - SUDDEN DEATH [None]
  - VENTRICULAR TACHYCARDIA [None]
